FAERS Safety Report 19900225 (Version 1)
Quarter: 2021Q3

REPORT INFORMATION
  Report Type: Spontaneous
  Country: SE (occurrence: SE)
  Receive Date: 20210930
  Receipt Date: 20210930
  Transmission Date: 20211014
  Serious: Yes (Other)
  Sender: FDA-Public Use
  Company Number: NVSC2021SE219707

PATIENT
  Age: 86 Year
  Sex: Male

DRUGS (1)
  1. ALLOPURINOL. [Suspect]
     Active Substance: ALLOPURINOL
     Indication: GOUT
     Dosage: 200 MG, QD (100 MILLIGRAM, BID)
     Route: 048

REACTIONS (4)
  - Consciousness fluctuating [Unknown]
  - Tongue biting [Unknown]
  - Tongue haemorrhage [Unknown]
  - Seizure [Unknown]
